FAERS Safety Report 23739234 (Version 1)
Quarter: 2024Q2

REPORT INFORMATION
  Report Type: Spontaneous
  Country: BR (occurrence: BR)
  Receive Date: 20240413
  Receipt Date: 20240413
  Transmission Date: 20240716
  Serious: Yes (Death, Hospitalization, Other)
  Sender: FDA-Public Use
  Company Number: BR-NOVITIUMPHARMA-2024BRNVP00497

PATIENT
  Age: 47 Year
  Sex: Male

DRUGS (1)
  1. SULFAMETHOXAZOLE\TRIMETHOPRIM [Suspect]
     Active Substance: SULFAMETHOXAZOLE\TRIMETHOPRIM
     Indication: Pneumocystis jirovecii pneumonia

REACTIONS (4)
  - Drug ineffective [Fatal]
  - Metabolic acidosis [Recovering/Resolving]
  - Myelosuppression [Recovering/Resolving]
  - Hyperkalaemia [Recovering/Resolving]
